FAERS Safety Report 6633344-3 (Version None)
Quarter: 2010Q1

REPORT INFORMATION
  Report Type: 
  Country: None (occurrence: None)
  Receive Date: 20100312
  Receipt Date: 20100224
  Transmission Date: 20100710
  Serious: Yes (Hospitalization)
  Sender: FDA-Public Use
  Company Number: US-JNJFOC-20100302836

PATIENT
  Age: 39 Year
  Sex: Female
  Weight: 89.81 kg

DRUGS (2)
  1. SIMPLY SLEEP NIGHTTIME [Suspect]
     Indication: INSOMNIA
     Route: 048
  2. SIMPLY SLEEP NIGHTTIME [Suspect]
     Route: 048

REACTIONS (3)
  - CONFUSIONAL STATE [None]
  - PRODUCT QUALITY ISSUE [None]
  - TRANSIENT GLOBAL AMNESIA [None]
